FAERS Safety Report 25119655 (Version 2)
Quarter: 2025Q2

REPORT INFORMATION
  Report Type: Report from Study
  Country: US (occurrence: US)
  Receive Date: 20250325
  Receipt Date: 20250403
  Transmission Date: 20250716
  Serious: Yes (Other)
  Sender: TAKEDA
  Company Number: US-TAKEDA-2024TUS128709

PATIENT
  Sex: Female

DRUGS (2)
  1. MARIBAVIR [Suspect]
     Active Substance: MARIBAVIR
     Indication: Cytomegalovirus infection
     Dosage: 400 MILLIGRAM, BID
     Dates: start: 20241207
  2. MARIBAVIR [Suspect]
     Active Substance: MARIBAVIR
     Dosage: 400 MILLIGRAM, BID

REACTIONS (8)
  - Gastrooesophageal reflux disease [Unknown]
  - Hernia [Unknown]
  - Pain [Recovering/Resolving]
  - Alopecia [Unknown]
  - Dysphagia [Unknown]
  - Product use issue [Unknown]
  - Headache [Unknown]
  - Fatigue [Unknown]
